FAERS Safety Report 9625681 (Version 1)
Quarter: 2013Q4

REPORT INFORMATION
  Report Type: Spontaneous
  Country: US (occurrence: None)
  Receive Date: 20131015
  Receipt Date: 20131015
  Transmission Date: 20140711
  Serious: Yes (Hospitalization)
  Sender: FDA-Public Use
  Company Number: None

PATIENT
  Age: 38 Year
  Sex: Female
  Weight: 83.01 kg

DRUGS (2)
  1. WELLBUTRIN [Suspect]
     Indication: MAJOR DEPRESSION
     Dosage: 1 PILL BID ORAL
     Route: 048
     Dates: start: 20120301, end: 20121126
  2. WELLBUTRIN [Suspect]
     Indication: SMOKING CESSATION THERAPY
     Dosage: 1 PILL BID ORAL
     Route: 048
     Dates: start: 20120301, end: 20121126

REACTIONS (2)
  - Antiphospholipid syndrome [None]
  - Blindness [None]
